FAERS Safety Report 9612941 (Version 1)
Quarter: 2013Q4

REPORT INFORMATION
  Report Type: Spontaneous
  Country: GB (occurrence: GB)
  Receive Date: 20131010
  Receipt Date: 20131010
  Transmission Date: 20140711
  Serious: Yes (Other)
  Sender: FDA-Public Use
  Company Number: GB-MYLANLABS-2013S1021985

PATIENT
  Age: 48 Year
  Sex: Male

DRUGS (2)
  1. CETIRIZINE [Suspect]
     Indication: URTICARIA
     Route: 048
     Dates: start: 20030226
  2. VESICARE [Suspect]
     Indication: HYPERTONIC BLADDER
     Route: 048
     Dates: start: 20030215

REACTIONS (1)
  - Herpes zoster [Recovered/Resolved]
